FAERS Safety Report 4912813-8 (Version None)
Quarter: 2006Q1

REPORT INFORMATION
  Report Type: 
  Country: None (occurrence: None)
  Receive Date: 20060215
  Receipt Date: 20060206
  Transmission Date: 20060701
  Serious: Yes (Hospitalization)
  Sender: FDA-Public Use
  Company Number: PHBS2006AT01957

PATIENT
  Sex: Male

DRUGS (1)
  1. ZOMETA [Suspect]
     Indication: METASTASES TO BONE
     Dosage: 1 DF, QMO

REACTIONS (4)
  - BONE OPERATION [None]
  - OSTEOMYELITIS [None]
  - SEQUESTRECTOMY [None]
  - TOOTH EXTRACTION [None]
